FAERS Safety Report 23140604 (Version 1)
Quarter: 2023Q4

REPORT INFORMATION
  Report Type: Report from Study
  Country: NZ (occurrence: NZ)
  Receive Date: 20231103
  Receipt Date: 20231103
  Transmission Date: 20240110
  Serious: No
  Sender: FDA-Public Use
  Company Number: NZ-JNJFOC-20221016754

PATIENT

DRUGS (1)
  1. PLACEBO [Suspect]
     Active Substance: UNSPECIFIED INGREDIENT
     Indication: Colitis ulcerative
     Route: 042
     Dates: start: 20220406, end: 20220406

REACTIONS (1)
  - Device issue [Unknown]
